FAERS Safety Report 22096610 (Version 1)
Quarter: 2023Q1

REPORT INFORMATION
  Report Type: Report from Study
  Country: US (occurrence: US)
  Receive Date: 20230315
  Receipt Date: 20230315
  Transmission Date: 20230417
  Serious: Yes (Other)
  Sender: FDA-Public Use
  Company Number: US-ABBVIE-4339631

PATIENT
  Age: 64 Year
  Sex: Female

DRUGS (1)
  1. IMBRUVICA [Suspect]
     Active Substance: IBRUTINIB
     Indication: Waldenstrom^s macroglobulinaemia
     Route: 058
     Dates: start: 20211012

REACTIONS (2)
  - Surgery [Recovering/Resolving]
  - Laboratory test abnormal [Recovering/Resolving]

NARRATIVE: CASE EVENT DATE: 20230109
